FAERS Safety Report 6137263-0 (Version None)
Quarter: 2009Q1

REPORT INFORMATION
  Report Type: 
  Country: None (occurrence: None)
  Receive Date: 20090330
  Receipt Date: 20090319
  Transmission Date: 20090719
  Serious: Yes (Hospitalization)
  Sender: FDA-Public Use
  Company Number: CH-ASTRAZENECA-2009PK00920

PATIENT
  Age: 81 Year
  Sex: Female

DRUGS (9)
  1. BELOC-ZOK [Suspect]
     Route: 048
     Dates: start: 20090127
  2. LASIX [Suspect]
     Indication: PULMONARY OEDEMA
     Route: 042
     Dates: start: 20090126, end: 20090130
  3. LASIX [Suspect]
     Route: 042
     Dates: start: 20090131
  4. LISITRIL [Suspect]
     Route: 048
     Dates: start: 20090124, end: 20090101
  5. LISITRIL [Suspect]
     Route: 048
     Dates: start: 20090101
  6. SIMVASTATIN [Concomitant]
     Route: 048
     Dates: start: 20090128
  7. ASPIRIN [Concomitant]
     Route: 048
     Dates: start: 20090121
  8. PLAVIX [Concomitant]
     Route: 048
     Dates: start: 20090121
  9. SINECOD [Concomitant]
     Route: 048
     Dates: start: 20090125, end: 20090204

REACTIONS (4)
  - DRUG INTERACTION [None]
  - DYSPNOEA EXERTIONAL [None]
  - HYPOTENSION [None]
  - MALAISE [None]
